FAERS Safety Report 11614738 (Version 2)
Quarter: 2015Q4

REPORT INFORMATION
  Report Type: Report from Study
  Country: US (occurrence: US)
  Receive Date: 20151009
  Receipt Date: 20151113
  Transmission Date: 20160304
  Serious: Yes (Other)
  Sender: FDA-Public Use
  Company Number: US-AMGEN-USASL2015104167

PATIENT
  Age: 54 Year
  Sex: Female

DRUGS (1)
  1. ENBREL [Suspect]
     Active Substance: ETANERCEPT
     Indication: PSORIATIC ARTHROPATHY
     Dosage: 50 MG, QWK
     Route: 065
     Dates: start: 2015

REACTIONS (9)
  - Condition aggravated [Unknown]
  - Drug dose omission [Unknown]
  - Cardiac failure [Unknown]
  - Stiff person syndrome [Unknown]
  - Multiple sclerosis [Unknown]
  - Psoriatic arthropathy [Unknown]
  - Arteriosclerosis [Unknown]
  - Incorrect product storage [Unknown]
  - Coronary artery disease [Unknown]

NARRATIVE: CASE EVENT DATE: 2015
